FAERS Safety Report 5302583-6 (Version None)
Quarter: 2007Q2

REPORT INFORMATION
  Report Type: 
  Country: None (occurrence: None)
  Receive Date: 20070419
  Receipt Date: 20070418
  Transmission Date: 20071010
  Serious: Yes (Hospitalization)
  Sender: FDA-Public Use
  Company Number: US-ROXANE LABORATORIES, INC-2007-DE-02234GD

PATIENT
  Age: 16 Year
  Sex: Female

DRUGS (19)
  1. PREDNISONE TAB [Suspect]
     Indication: ASTHMA
     Route: 048
  2. METHYLPREDNISOLONE 4MG TAB [Suspect]
     Indication: ACUTE RESPIRATORY FAILURE
     Route: 042
  3. METHYLPREDNISOLONE 4MG TAB [Suspect]
     Indication: STATUS ASTHMATICUS
  4. NIMBEX [Suspect]
     Indication: NEUROMUSCULAR BLOCKING THERAPY
     Dosage: 0.1 - 0.8 MG/KG/H
  5. IPRATROPIUM BROMIDE [Concomitant]
     Indication: ACUTE RESPIRATORY FAILURE
  6. IPRATROPIUM BROMIDE [Concomitant]
     Indication: STATUS ASTHMATICUS
  7. ALBUTEROL [Concomitant]
     Indication: ASTHMA
     Route: 055
  8. ALBUTEROL [Concomitant]
     Indication: STATUS ASTHMATICUS
     Dosage: 15 MG/H
     Route: 055
  9. MAGNESIUM SULFATE [Concomitant]
     Indication: ACUTE RESPIRATORY FAILURE
     Dosage: 100 - 200 MG/KG
     Route: 042
  10. MAGNESIUM SULFATE [Concomitant]
  11. MAGNESIUM SULFATE [Concomitant]
     Indication: STATUS ASTHMATICUS
  12. TERBUTALINE SULFATE [Concomitant]
     Indication: ACUTE RESPIRATORY FAILURE
     Dosage: 10 MCG/KG LOADING DOSE FOLLOWED BY AN INFUSION TITRATED TO A MAXIMAL DOSE 4 MCG/KG/H
     Route: 042
  13. TERBUTALINE SULFATE [Concomitant]
     Indication: STATUS ASTHMATICUS
  14. THEOPHYLLINE [Concomitant]
     Indication: ACUTE RESPIRATORY FAILURE
     Dosage: 1 MG/KG/H TARGETING SERUM THEOPHYLLINE LEVEL 15 MCG/ML
  15. THEOPHYLLINE [Concomitant]
     Indication: STATUS ASTHMATICUS
  16. KETAMINE HCL [Concomitant]
     Indication: SEDATIVE THERAPY
     Dosage: 2 MG/KG/H
  17. FENTANYL [Concomitant]
     Indication: SEDATIVE THERAPY
  18. ISOFLURANE [Concomitant]
     Indication: BRONCHOSPASM
     Route: 055
  19. ISOFLURANE [Concomitant]
     Indication: BAROTRAUMA

REACTIONS (2)
  - RENAL FAILURE ACUTE [None]
  - RHABDOMYOLYSIS [None]
